FAERS Safety Report 9805423 (Version 2)
Quarter: 2014Q1

REPORT INFORMATION
  Report Type: Spontaneous
  Country: US (occurrence: US)
  Receive Date: 20140109
  Receipt Date: 20140109
  Transmission Date: 20141002
  Serious: Yes (Other)
  Sender: FDA-Public Use
  Company Number: US-AMGEN-USASP2011069683

PATIENT
  Age: 62 Year
  Sex: Female

DRUGS (14)
  1. PROLIA [Suspect]
     Indication: OSTEOPOROSIS POSTMENOPAUSAL
     Dosage: 60 MG, Q6MO
     Route: 065
     Dates: start: 20101229
  2. OMEPRAZOLE [Concomitant]
     Dosage: 2 UNK, BID
  3. RANITIDINE [Concomitant]
     Dosage: QD
     Dates: start: 201109
  4. SINGULAIR [Concomitant]
     Dosage: UNK UNK, QD
  5. ZYRTEC [Concomitant]
  6. FIORINAL [Concomitant]
     Dosage: UNK UNK, AS NECESSARY
  7. VITAMIN D [Concomitant]
  8. GARLIC [Concomitant]
  9. CALCIUM WITH VITAMIN D [Concomitant]
  10. MAGNESIUM [Concomitant]
  11. FLORIFY [Concomitant]
  12. MULTIVITAMIN [Concomitant]
  13. CRANBERRY [Concomitant]
     Dates: start: 2011
  14. BENADRYL                           /00000402/ [Concomitant]
     Dosage: UNK UNK, AS NECESSARY

REACTIONS (6)
  - Nephrolithiasis [Recovering/Resolving]
  - Cough [Not Recovered/Not Resolved]
  - Weight increased [Not Recovered/Not Resolved]
  - Gastrooesophageal reflux disease [Recovering/Resolving]
  - Arthralgia [Not Recovered/Not Resolved]
  - Pain in extremity [Not Recovered/Not Resolved]
